FAERS Safety Report 8225575-6 (Version None)
Quarter: 2012Q1

REPORT INFORMATION
  Report Type: 
  Country: None (occurrence: None)
  Receive Date: 20120321
  Receipt Date: 20120316
  Transmission Date: 20120608
  Serious: Yes (Death)
  Sender: FDA-Public Use
  Company Number: PHHY2012CH023916

PATIENT
  Age: 60 Year
  Sex: Female

DRUGS (4)
  1. PHENYTOIN [Concomitant]
  2. TOPIRAMATE [Suspect]
     Indication: STATUS EPILEPTICUS
     Route: 048
  3. LEVETIRACETAM [Concomitant]
  4. LACOSAMIDE [Concomitant]

REACTIONS (2)
  - DRUG INEFFECTIVE [None]
  - POST PROCEDURAL INFECTION [None]
